FAERS Safety Report 9145895 (Version 4)
Quarter: 2013Q4

REPORT INFORMATION
  Report Type: Spontaneous
  Country: US (occurrence: US)
  Receive Date: 20130307
  Receipt Date: 20131017
  Transmission Date: 20140711
  Serious: Yes (Hospitalization, Other)
  Sender: FDA-Public Use
  Company Number: US-009507513-1303USA001922

PATIENT
  Sex: Female

DRUGS (8)
  1. FOSAMAX [Suspect]
     Indication: OSTEOPOROSIS
     Dosage: 70 MG, QW
     Route: 048
     Dates: start: 200109, end: 200506
  2. CALCIUM (UNSPECIFIED) (+) VITAMIN D (UNSPECIFIED) [Concomitant]
     Dosage: 600 MG X 2 QD
     Dates: start: 1990
  3. VITAMINS (UNSPECIFIED) [Concomitant]
     Dosage: 1 DF, QD
     Dates: start: 1980
  4. ACIPHEX [Concomitant]
     Dosage: UNK
     Dates: start: 2001
  5. HORMONES (UNSPECIFIED) [Concomitant]
     Dosage: UNK
     Dates: start: 1980
  6. OXYCODONE [Concomitant]
     Indication: PAIN
     Dosage: UNK
     Dates: start: 2000, end: 2005
  7. LORAZEPAM [Concomitant]
     Indication: ANXIETY
     Dosage: UNK
     Dates: start: 2000, end: 2003
  8. AMBIEN [Concomitant]
     Indication: INSOMNIA
     Dosage: UNK
     Dates: start: 2000, end: 2012

REACTIONS (26)
  - Femur fracture [Unknown]
  - Intramedullary rod insertion [Unknown]
  - Thyroidectomy [Unknown]
  - Arthralgia [Unknown]
  - Back pain [Not Recovered/Not Resolved]
  - Drug administration error [Unknown]
  - Mobility decreased [Unknown]
  - Hypertension [Unknown]
  - Rhinorrhoea [Unknown]
  - Hypokalaemia [Unknown]
  - Hyperchlorhydria [Unknown]
  - Adverse event [Unknown]
  - Arthropathy [Unknown]
  - Exostosis [Unknown]
  - Road traffic accident [Unknown]
  - Osteopenia [Unknown]
  - Depression [Unknown]
  - Foot fracture [Unknown]
  - Fall [Unknown]
  - Fall [Unknown]
  - Mental status changes [Unknown]
  - Blood sodium decreased [Unknown]
  - Urinary retention [Unknown]
  - Gastric ulcer [Unknown]
  - Constipation [Unknown]
  - Drug ineffective [Unknown]
